FAERS Safety Report 8347719-8 (Version None)
Quarter: 2012Q2

REPORT INFORMATION
  Report Type: 
  Country: None (occurrence: None)
  Receive Date: 20120509
  Receipt Date: 20120426
  Transmission Date: 20120825
  Serious: Yes (Hospitalization)
  Sender: FDA-Public Use
  Company Number: US-ELI_LILLY_AND_COMPANY-US201204010167

PATIENT
  Sex: Male

DRUGS (9)
  1. LISINOPRIL [Concomitant]
  2. ZYPREXA ZYDIS [Suspect]
     Dosage: 30 MG, QD
  3. COGENTIN [Concomitant]
  4. LOXAPINE [Concomitant]
  5. ZYPREXA ZYDIS [Suspect]
     Indication: PSYCHOTIC DISORDER
     Dosage: 30 MG, QD
     Dates: start: 20110101
  6. METFORMIN HCL [Concomitant]
  7. WELCHOL [Concomitant]
  8. NORVASC [Concomitant]
  9. DEPAKOTE [Concomitant]

REACTIONS (3)
  - INTENTIONAL DRUG MISUSE [None]
  - OVERDOSE [None]
  - PSYCHOTIC DISORDER [None]
